FAERS Safety Report 16703619 (Version 2)
Quarter: 2019Q3

REPORT INFORMATION
  Report Type: Report from Study
  Country: US (occurrence: US)
  Receive Date: 20190814
  Receipt Date: 20190918
  Transmission Date: 20191004
  Serious: Yes (Hospitalization)
  Sender: FDA-Public Use
  Company Number: US-CLOVIS ONCOLOGY-CLO-2019-001602

PATIENT
  Sex: Female

DRUGS (2)
  1. RUBRACA [Suspect]
     Active Substance: RUCAPARIB CAMSYLATE
     Indication: OVARIAN CANCER
     Dosage: 200 MG, BID
     Route: 048
     Dates: start: 201907, end: 2019
  2. RUBRACA [Suspect]
     Active Substance: RUCAPARIB CAMSYLATE
     Dosage: 200 MG, BID
     Route: 048
     Dates: start: 201907

REACTIONS (8)
  - Oedema peripheral [Recovering/Resolving]
  - Intestinal obstruction [Unknown]
  - Xerosis [Unknown]
  - Abdominal pain upper [Not Recovered/Not Resolved]
  - Taste disorder [Unknown]
  - Vomiting [Unknown]
  - Nausea [Not Recovered/Not Resolved]
  - Decreased appetite [Not Recovered/Not Resolved]

NARRATIVE: CASE EVENT DATE: 2019
